FAERS Safety Report 18343525 (Version 5)
Quarter: 2020Q4

REPORT INFORMATION
  Report Type: Spontaneous
  Country: US (occurrence: US)
  Receive Date: 20201005
  Receipt Date: 20201119
  Transmission Date: 20210113
  Serious: No
  Sender: FDA-Public Use
  Company Number: US-PFIZER INC-2020376774

PATIENT
  Age: 17 Year
  Sex: Male
  Weight: 90.72 kg

DRUGS (5)
  1. SYNTHROID [Concomitant]
     Active Substance: LEVOTHYROXINE SODIUM
     Indication: HYPOPITUITARISM
     Dosage: UNK
  2. CORTEF [Concomitant]
     Active Substance: HYDROCORTISONE
     Indication: HYPOPITUITARISM
     Dosage: 25 MG, DAILY (5MG, 2 IN THE MORNING AND AFTERNOON AND 1 IN THE EVENING)
  3. GENOTROPIN [Suspect]
     Active Substance: SOMATROPIN
     Indication: HYPOPITUITARISM
     Dosage: 3.6 MG, 1X/DAY (3.6MG INJECTION EVERY NIGHT)
  4. GENOTROPIN [Suspect]
     Active Substance: SOMATROPIN
     Dosage: 3.5 MG, DAILY
  5. GENOTROPIN [Suspect]
     Active Substance: SOMATROPIN
     Dosage: 3.4 MG, DAILY

REACTIONS (7)
  - Off label use [Unknown]
  - Device issue [Unknown]
  - Product use in unapproved indication [Unknown]
  - Device dispensing error [Unknown]
  - Product prescribing error [Unknown]
  - Device use issue [Unknown]
  - Drug dose omission by device [Unknown]

NARRATIVE: CASE EVENT DATE: 20200926
